FAERS Safety Report 24281035 (Version 1)
Quarter: 2024Q3

REPORT INFORMATION
  Report Type: Report from Study
  Country: US (occurrence: US)
  Receive Date: 20240904
  Receipt Date: 20240904
  Transmission Date: 20241017
  Serious: Yes (Death)
  Sender: BAYER
  Company Number: US-BAYER-2024A126681

PATIENT
  Age: 74 Year
  Sex: Female
  Weight: 55.329 kg

DRUGS (12)
  1. ADEMPAS [Suspect]
     Active Substance: RIOCIGUAT
     Indication: Pulmonary arterial hypertension
     Dosage: UNK
     Dates: start: 20190404
  2. ADEMPAS [Suspect]
     Active Substance: RIOCIGUAT
     Indication: Pulmonary arterial hypertension
     Dosage: 1.5 MG, TID
     Route: 048
  3. TYVASO [Concomitant]
     Active Substance: TREPROSTINIL
  4. PROTONIX [Concomitant]
     Active Substance: PANTOPRAZOLE SODIUM
  5. CREON [Concomitant]
     Active Substance: PANCRELIPASE AMYLASE\PANCRELIPASE LIPASE\PANCRELIPASE PROTEASE
  6. POTASSIUM [Concomitant]
     Active Substance: POTASSIUM
  7. LETAIRIS [Concomitant]
     Active Substance: AMBRISENTAN
  8. OXYGEN [Concomitant]
     Active Substance: OXYGEN
  9. VENTOLIN HFA [Concomitant]
     Active Substance: ALBUTEROL SULFATE
  10. XOPENEX [Concomitant]
     Active Substance: LEVALBUTEROL HYDROCHLORIDE
  11. XARELTO [Concomitant]
     Active Substance: RIVAROXABAN
  12. TORSEMIDE [Concomitant]
     Active Substance: TORSEMIDE

REACTIONS (1)
  - Death [Fatal]

NARRATIVE: CASE EVENT DATE: 20240810
